FAERS Safety Report 7347349-0 (Version None)
Quarter: 2011Q1

REPORT INFORMATION
  Report Type: 
  Country: None (occurrence: None)
  Receive Date: 20110303
  Receipt Date: 20110218
  Transmission Date: 20110831
  Serious: Yes (Other)
  Sender: FDA-Public Use
  Company Number: 027947

PATIENT

DRUGS (1)
  1. LACOSAMIDE [Suspect]

REACTIONS (2)
  - STATUS EPILEPTICUS [None]
  - PARKINSONISM [None]
